FAERS Safety Report 18276641 (Version 1)
Quarter: 2020Q3

REPORT INFORMATION
  Report Type: Spontaneous
  Country: US (occurrence: US)
  Receive Date: 20200903
  Receipt Date: 20200903
  Transmission Date: 20201103
  Serious: Yes (Other)
  Sender: FDA-Public Use
  Company Number: None

PATIENT
  Age: 4 Decade
  Sex: Male

DRUGS (7)
  1. METHYLPREDNISOLONE. [Suspect]
     Active Substance: METHYLPREDNISOLONE
     Indication: COVID-19
     Dosage: ?          OTHER DOSE:20MG?60MG;?
     Route: 042
     Dates: start: 2020, end: 2020
  2. RITONAVIR. [Suspect]
     Active Substance: RITONAVIR
     Dosage: DOSE: 400MG/100MG FREQUENCY BD
     Route: 048
     Dates: start: 2020
  3. LOPINAVIR [Suspect]
     Active Substance: LOPINAVIR
     Indication: COVID-19
     Dosage: ?          OTHER DOSE:400MG/100MG;?
     Route: 048
     Dates: start: 2020, end: 2020
  4. MOXIFLOXACIN. [Suspect]
     Active Substance: MOXIFLOXACIN
     Indication: COVID-19
     Route: 042
     Dates: start: 2020, end: 2020
  5. UMIFENOVIR. [Suspect]
     Active Substance: UMIFENOVIR
     Indication: COVID-19
     Route: 048
     Dates: start: 2020, end: 2020
  6. INTERFERON ALFA?2B [Suspect]
     Active Substance: INTERFERON ALFA-2B
     Indication: COVID-19
     Dosage: ?          OTHER ROUTE:AEROSLIZED INHALATION?
     Route: 055
     Dates: start: 2020, end: 2020
  7. IMMUNE GLOBULIN IV [Suspect]
     Active Substance: HUMAN IMMUNOGLOBULIN G
     Indication: COVID-19
     Route: 042
     Dates: start: 2020, end: 2020

REACTIONS (1)
  - Off label use [None]
